FAERS Safety Report 6228487-2 (Version None)
Quarter: 2009Q2

REPORT INFORMATION
  Report Type: 
  Country: None (occurrence: None)
  Receive Date: 20090611
  Receipt Date: 20090611
  Transmission Date: 20091009
  Serious: No
  Sender: FDA-Public Use
  Company Number: None

PATIENT
  Sex: Male

DRUGS (2)
  1. LEVETIRACETAM [Suspect]
     Indication: EPILEPSY
     Dates: start: 20081101
  2. LAMOTRIGINE [Suspect]

REACTIONS (3)
  - AURA [None]
  - CONVULSION [None]
  - FATIGUE [None]
